FAERS Safety Report 6072658-5 (Version None)
Quarter: 2009Q1

REPORT INFORMATION
  Report Type: 
  Country: None (occurrence: None)
  Receive Date: 20090210
  Receipt Date: 20081128
  Transmission Date: 20090719
  Serious: Yes (Other)
  Sender: FDA-Public Use
  Company Number: FR-PFIZER INC-2008101402

PATIENT

DRUGS (5)
  1. LYRICA [Suspect]
     Indication: NEURALGIA
     Route: 048
     Dates: start: 20081018
  2. LORMETAZEPAM [Concomitant]
     Indication: SLEEP DISORDER
     Route: 048
  3. SKENAN [Concomitant]
     Indication: PAIN
     Dosage: 180 MG, 1X/DAY
     Route: 048
  4. ACETAMINOPHEN AND CODEINE PHOSPHATE [Concomitant]
     Indication: PAIN
     Dosage: 6 TABLETS PER DAY IN 6 INTAKES
     Route: 048
  5. ACTISKENAN [Concomitant]
     Indication: PAIN
     Dosage: 20 MG, 4X/DAY
     Route: 048

REACTIONS (2)
  - RASH [None]
  - VISUAL FIELD DEFECT [None]
